FAERS Safety Report 8502795-4 (Version None)
Quarter: 2012Q2

REPORT INFORMATION
  Report Type: 
  Country: None (occurrence: None)
  Receive Date: 20120629
  Receipt Date: 20120619
  Transmission Date: 20120825
  Serious: Yes (Other)
  Sender: FDA-Public Use
  Company Number: DSA_58152_2012

PATIENT

DRUGS (4)
  1. GEMCITABINE [Suspect]
     Indication: COLORECTAL CANCER
     Dosage: 900 MG/M2, WEEKLY, INTRAVENOUS
     Route: 042
  2. FLUOROURACIL [Suspect]
     Indication: COLORECTAL CANCER
     Dosage: 450 MG/M2, WEEKLY, INTRAVENOUS BOLUS
     Route: 040
  3. LEUCOVORIN CALCIUM [Suspect]
     Indication: COLORECTAL CANCER
     Dosage: 100MG/M2, WEEKLY INTRAVENOUS
     Route: 042
  4. BEVACIZUMAB [Suspect]
     Indication: COLORECTAL CANCER
     Dosage: 5 MG/KG, WEEKLY, INTRAVENOUS
     Route: 042

REACTIONS (1)
  - DIARRHOEA [None]
